FAERS Safety Report 10495766 (Version 1)
Quarter: 2014Q4

REPORT INFORMATION
  Report Type: Spontaneous
  Country: US (occurrence: US)
  Receive Date: 20141003
  Receipt Date: 20141003
  Transmission Date: 20150528
  Serious: Yes (Other)
  Sender: FDA-Public Use
  Company Number: US-BAYER-2014-144364

PATIENT
  Age: 45 Year
  Sex: Female

DRUGS (6)
  1. ESTRADIOL HEMIHYDRATE (6.5) [Suspect]
     Active Substance: ESTRADIOL HEMIHYDRATE
     Indication: DEPRESSION
  2. ESTRADIOL HEMIHYDRATE (6.5) [Suspect]
     Active Substance: ESTRADIOL HEMIHYDRATE
     Indication: HOT FLUSH
  3. CLIMARA [Suspect]
     Active Substance: ESTRADIOL
     Indication: DEPRESSION
  4. CLIMARA [Suspect]
     Active Substance: ESTRADIOL
     Indication: POSTMENOPAUSE
     Dosage: 1 DF, OW
     Route: 062
     Dates: start: 2001
  5. ESTRADIOL HEMIHYDRATE (6.5) [Suspect]
     Active Substance: ESTRADIOL HEMIHYDRATE
     Indication: POSTMENOPAUSE
     Dosage: 1 DF, OW
     Route: 062
  6. CLIMARA [Suspect]
     Active Substance: ESTRADIOL
     Indication: HOT FLUSH

REACTIONS (2)
  - Product adhesion issue [None]
  - Application site ulcer [None]
